FAERS Safety Report 9701105 (Version 2)
Quarter: 2013Q4

REPORT INFORMATION
  Report Type: Spontaneous
  Country: US (occurrence: None)
  Receive Date: 20131119
  Receipt Date: 20131213
  Transmission Date: 20140711
  Serious: Yes (Death, Hospitalization, Other)
  Sender: FDA-Public Use
  Company Number: 2013US002821

PATIENT
  Age: 87 Year
  Sex: Female

DRUGS (2)
  1. ICLUSIG (PONATINIB) [Suspect]
     Indication: CHRONIC MYELOID LEUKAEMIA
     Route: 048
     Dates: start: 20130403, end: 20130809
  2. SEROQUEL (QUETIAPINE FUMARATE) [Concomitant]

REACTIONS (7)
  - Ischaemic stroke [None]
  - Encephalopathy [None]
  - Oxygen saturation decreased [None]
  - Blood pressure decreased [None]
  - Transient ischaemic attack [None]
  - Agitation [None]
  - Insomnia [None]
